FAERS Safety Report 9752990 (Version 1)
Quarter: 2013Q4

REPORT INFORMATION
  Report Type: Spontaneous
  Country: GB (occurrence: GB)
  Receive Date: 20131213
  Receipt Date: 20131213
  Transmission Date: 20140711
  Serious: Yes (Other)
  Sender: FDA-Public Use
  Company Number: GB-PFIZER INC-2013352203

PATIENT
  Age: 38 Year
  Sex: Female

DRUGS (2)
  1. CISPLATIN [Suspect]
     Indication: CERVIX CARCINOMA
     Dosage: 30 MG/M2, WEEKLY
  2. ZAPONEX [Suspect]
     Dosage: 500 MG, UNK
     Route: 048
     Dates: start: 20090626

REACTIONS (6)
  - Off label use [Not Recovered/Not Resolved]
  - Neutrophil count increased [Recovered/Resolved]
  - White blood cell count increased [Not Recovered/Not Resolved]
  - Platelet count increased [Not Recovered/Not Resolved]
  - Disease progression [Not Recovered/Not Resolved]
  - Cervix carcinoma [Not Recovered/Not Resolved]
